FAERS Safety Report 8239647-3 (Version None)
Quarter: 2012Q1

REPORT INFORMATION
  Report Type: 
  Country: None (occurrence: None)
  Receive Date: 20120327
  Receipt Date: 20120327
  Transmission Date: 20120608
  Serious: No
  Sender: FDA-Public Use
  Company Number: None

PATIENT
  Age: 35 Year
  Sex: Male

DRUGS (1)
  1. MOBIC [Suspect]
     Dates: start: 20100814, end: 20100828

REACTIONS (13)
  - BILIARY FIBROSIS [None]
  - DRUG RASH WITH EOSINOPHILIA AND SYSTEMIC SYMPTOMS [None]
  - DISORIENTATION [None]
  - EXFOLIATIVE RASH [None]
  - LIVER DISORDER [None]
  - SPLENOMEGALY [None]
  - NAUSEA [None]
  - PYREXIA [None]
  - STEVENS-JOHNSON SYNDROME [None]
  - EPSTEIN-BARR VIRUS ANTIBODY POSITIVE [None]
  - CHOLESTASIS [None]
  - CHROMATURIA [None]
  - VOMITING [None]
